FAERS Safety Report 14999479 (Version 1)
Quarter: 2018Q2

REPORT INFORMATION
  Report Type: Spontaneous
  Country: CA (occurrence: CA)
  Receive Date: 20180612
  Receipt Date: 20180612
  Transmission Date: 20180711
  Serious: Yes (Other)
  Sender: FDA-Public Use
  Company Number: CA-ORION CORPORATION ORION PHARMA-TREX2018-1463

PATIENT
  Age: 61 Year
  Sex: Female

DRUGS (2)
  1. METHOTREXATE (TRADE NAME UNKNOWN) [Suspect]
     Active Substance: METHOTREXATE
     Indication: PRODUCT USED FOR UNKNOWN INDICATION
     Route: 065
     Dates: start: 200804, end: 201706
  2. PLAQUENIL [Suspect]
     Active Substance: HYDROXYCHLOROQUINE SULFATE
     Indication: PRODUCT USED FOR UNKNOWN INDICATION
     Route: 065
     Dates: start: 200806, end: 201706

REACTIONS (4)
  - Lung disorder [Unknown]
  - Drug ineffective [Unknown]
  - Drug intolerance [Unknown]
  - Hypersensitivity [Unknown]

NARRATIVE: CASE EVENT DATE: 2014
